FAERS Safety Report 19354901 (Version 1)
Quarter: 2021Q2

REPORT INFORMATION
  Report Type: Spontaneous
  Country: US (occurrence: US)
  Receive Date: 20210601
  Receipt Date: 20210601
  Transmission Date: 20210717
  Serious: No
  Sender: FDA-Public Use
  Company Number: None

PATIENT
  Age: 73 Year
  Sex: Female

DRUGS (9)
  1. SILDENAFIL. [Suspect]
     Active Substance: SILDENAFIL
     Indication: HYPERTENSION
     Route: 048
     Dates: start: 20200406
  2. AMIODARONE TAB 200MG [Concomitant]
     Active Substance: AMIODARONE
     Dates: start: 20201207
  3. LEVOTHYROXIN TAB 100MCG [Concomitant]
     Dates: start: 20210514
  4. POT CL MICRO TAB 20MEQ ER [Concomitant]
     Dates: start: 20210428
  5. ELIQUIS [Concomitant]
     Active Substance: APIXABAN
     Dates: start: 20210227
  6. FUROSEMIDE 40MG [Concomitant]
     Active Substance: FUROSEMIDE
     Dates: start: 20210506
  7. ALENDRONATE 70MG [Concomitant]
     Active Substance: ALENDRONATE SODIUM
     Dates: start: 20210507
  8. ESTRADIOL 10MCG [Concomitant]
     Active Substance: ESTRADIOL
     Dates: start: 20200629
  9. OPSUMIT TAB 10MG [Concomitant]
     Dates: start: 20200504

REACTIONS (2)
  - Spinal fracture [None]
  - Fall [None]

NARRATIVE: CASE EVENT DATE: 20210201
